FAERS Safety Report 10244149 (Version 1)
Quarter: 2014Q2

REPORT INFORMATION
  Report Type: Spontaneous
  Country: BD (occurrence: BD)
  Receive Date: 20140618
  Receipt Date: 20140618
  Transmission Date: 20141212
  Serious: Yes (Death, Hospitalization, Other)
  Sender: FDA-Public Use
  Company Number: PHHY2013BD157569

PATIENT
  Age: 85 Year
  Sex: Female

DRUGS (2)
  1. ACLASTA [Suspect]
     Indication: OSTEOPOROSIS
     Dosage: UNK (ONCE YEARLY)
     Route: 042
     Dates: start: 20130123
  2. ACLASTA [Suspect]
     Dosage: UNK
     Route: 042

REACTIONS (1)
  - Cerebrovascular accident [Fatal]
